FAERS Safety Report 21373035 (Version 9)
Quarter: 2022Q4

REPORT INFORMATION
  Report Type: Report from Study
  Country: TR (occurrence: TR)
  Receive Date: 20220924
  Receipt Date: 20221229
  Transmission Date: 20230113
  Serious: Yes (Hospitalization)
  Sender: FDA-Public Use
  Company Number: TR-JNJFOC-20220937262

PATIENT
  Age: 51 Year
  Sex: Female

DRUGS (4)
  1. DARATUMUMAB [Suspect]
     Active Substance: DARATUMUMAB
     Indication: Plasma cell myeloma refractory
     Route: 058
     Dates: start: 20220907
  2. POMALIDOMIDE [Suspect]
     Active Substance: POMALIDOMIDE
     Indication: Plasma cell myeloma refractory
     Route: 048
     Dates: start: 20220909, end: 20220913
  3. POMALIDOMIDE [Suspect]
     Active Substance: POMALIDOMIDE
     Dosage: THE MOST RECENT DOSE OF POMALIDOMIDE WAS ON 13-SEP-2022.
     Route: 048
     Dates: start: 20220921, end: 20220927
  4. DEXAMETHASONE [Suspect]
     Active Substance: DEXAMETHASONE
     Indication: Plasma cell myeloma refractory
     Route: 048
     Dates: start: 20220907

REACTIONS (1)
  - Febrile neutropenia [Recovered/Resolved]

NARRATIVE: CASE EVENT DATE: 20220907
